FAERS Safety Report 5329680-3 (Version None)
Quarter: 2007Q2

REPORT INFORMATION
  Report Type: 
  Country: None (occurrence: None)
  Receive Date: 20070521
  Receipt Date: 20070503
  Transmission Date: 20071010
  Serious: Yes (Hospitalization, Other)
  Sender: FDA-Public Use
  Company Number: US-RB-006276-07

PATIENT
  Sex: Male

DRUGS (2)
  1. SUBOXONE [Suspect]
  2. VALIUM [Concomitant]
     Route: 042

REACTIONS (1)
  - CARDIAC DISORDER [None]
